FAERS Safety Report 23393176 (Version 1)
Quarter: 2024Q1

REPORT INFORMATION
  Report Type: Spontaneous
  Country: CN (occurrence: None)
  Receive Date: 20240111
  Receipt Date: 20240111
  Transmission Date: 20240410
  Serious: Yes (Other)
  Sender: FDA-Public Use
  Company Number: 2024A001832

PATIENT
  Age: 37 Year
  Sex: Female
  Weight: 48 kg

DRUGS (5)
  1. DURVALUMAB [Suspect]
     Active Substance: DURVALUMAB
     Indication: Cholangiocarcinoma
     Route: 042
  2. GEMCITABINE [Suspect]
     Active Substance: GEMCITABINE
     Indication: Cholangiocarcinoma
     Dosage: 1000 MG/M2 ONCE EVERY FOUR WEEKS
  3. OXALIPLATIN [Suspect]
     Active Substance: OXALIPLATIN
     Indication: Cholangiocarcinoma
     Dosage: PLUS OXALIPLATIN 85 MG/M2 ONCE EVERY FOUR WEEKS
  4. PEMIGATINIB [Suspect]
     Active Substance: PEMIGATINIB
     Indication: Cholangiocarcinoma
     Dosage: 9 MG/D FOR TWO WEEKS FOLLOWED BY ONE WEEK OF REST, WITH A THREE?WEEK CYCLE
  5. PEMIGATINIB [Suspect]
     Active Substance: PEMIGATINIB
     Indication: Cholangiocarcinoma
     Dosage: 13.5 MG/D FOR TWO WEEKS FOLLOWED BY ONE WEEK OF REST, WITH A THREE?WEEK CYCLE

REACTIONS (19)
  - Malignant neoplasm progression [Unknown]
  - Therapy non-responder [Unknown]
  - Hepatic cancer recurrent [Unknown]
  - Hepatic failure [Unknown]
  - Myelosuppression [Unknown]
  - Thrombocytopenia [Unknown]
  - Ecchymosis [Unknown]
  - Conjunctival haemorrhage [Unknown]
  - Fatigue [Unknown]
  - Nausea [Unknown]
  - Vomiting [Unknown]
  - Decreased appetite [Unknown]
  - Discomfort [Unknown]
  - Hypoproteinaemia [Unknown]
  - Alopecia [Unknown]
  - Nail toxicity [Unknown]
  - Taste disorder [Unknown]
  - Stomatitis [Unknown]
  - Dry mouth [Unknown]
